FAERS Safety Report 20321369 (Version 1)
Quarter: 2022Q1

REPORT INFORMATION
  Report Type: Spontaneous
  Country: US (occurrence: US)
  Receive Date: 20220111
  Receipt Date: 20220111
  Transmission Date: 20220423
  Serious: No
  Sender: FDA-Public Use
  Company Number: US-SUN PHARMACEUTICAL INDUSTRIES LTD-2021R1-311423

PATIENT
  Age: 64 Year
  Sex: Male

DRUGS (1)
  1. LEVULAN KERASTICK [Suspect]
     Active Substance: AMINOLEVULINIC ACID HYDROCHLORIDE
     Indication: Photodynamic therapy
     Dosage: UNK
     Route: 065
     Dates: start: 202108

REACTIONS (3)
  - Burning sensation [Unknown]
  - Eye irritation [Unknown]
  - Blister [Unknown]

NARRATIVE: CASE EVENT DATE: 20210910
